FAERS Safety Report 7570833-1 (Version None)
Quarter: 2011Q2

REPORT INFORMATION
  Report Type: 
  Country: None (occurrence: None)
  Receive Date: 20110624
  Receipt Date: 20110531
  Transmission Date: 20111010
  Serious: No
  Sender: FDA-Public Use
  Company Number: US-ALLERGAN-1107402US

PATIENT
  Age: 63 Year
  Sex: Female

DRUGS (4)
  1. LATISSE [Suspect]
     Indication: GROWTH OF EYELASHES
  2. LATISSE [Suspect]
  3. ALLERGY EYE DROPS [Concomitant]
     Dosage: UNK
  4. THERA TEARS [Concomitant]
     Dosage: UNK

REACTIONS (2)
  - EYELASH DISCOLOURATION [None]
  - WRONG TECHNIQUE IN DRUG USAGE PROCESS [None]
